FAERS Safety Report 8076416-1 (Version None)
Quarter: 2012Q1

REPORT INFORMATION
  Report Type: 
  Country: None (occurrence: None)
  Receive Date: 20120127
  Receipt Date: 20120116
  Transmission Date: 20120608
  Serious: Yes (Life-Threatening, Hospitalization)
  Sender: FDA-Public Use
  Company Number: ES-ROCHE-768843

PATIENT
  Sex: Female
  Weight: 63.5 kg

DRUGS (27)
  1. MYCOPHENOLATE MOFETIL (CELLCEPT) [Suspect]
  2. CLOPIDOGREL [Concomitant]
  3. MYCOPHENOLATE MOFETIL (CELLCEPT) [Suspect]
     Indication: ANTI-NEUTROPHIL CYTOPLASMIC ANTIBODY POSITIVE VASCULITIS
     Dosage: PREVIOUS DOSE WAS 3000 MG
     Route: 065
  4. PREDNISONE TAB [Concomitant]
  5. ENALAPRIL [Concomitant]
  6. CITALOPRAM HYDROBROMIDE [Concomitant]
  7. MYCOPHENOLATE MOFETIL (CELLCEPT) [Suspect]
     Dosage: CURRENT DOSE: 2000 MG
     Route: 065
  8. MYCOPHENOLATE MOFETIL (CELLCEPT) [Suspect]
  9. PREDNISONE TAB [Concomitant]
  10. BISOPROLOL FUMARATE [Concomitant]
  11. PREDNISONE TAB [Concomitant]
  12. OMEPRAZOLE [Concomitant]
  13. PREDNISONE TAB [Concomitant]
  14. FUROSEMIDE [Concomitant]
  15. ASPIRIN [Concomitant]
  16. PRAVASTATIN [Concomitant]
  17. ENOXAPARIN [Concomitant]
  18. COTRIM [Concomitant]
  19. NITROGLYCERIN [Concomitant]
  20. AZATHIOPRINE [Concomitant]
  21. LORAZEPAM [Concomitant]
  22. MYCOPHENOLATE MOFETIL (CELLCEPT) [Suspect]
  23. ALENDRONATE SODIUM [Concomitant]
     Dosage: 70 MG C/ WEEK
  24. PREDNISONE TAB [Concomitant]
  25. CALCIUM/VITAMIN D [Concomitant]
  26. AZATHIOPRINE [Concomitant]
  27. AMLODIPINE [Concomitant]

REACTIONS (3)
  - URINARY TRACT INFECTION [None]
  - ENTEROCOCCAL INFECTION [None]
  - LUNG INFILTRATION [None]
